FAERS Safety Report 6314499-7 (Version None)
Quarter: 2009Q3

REPORT INFORMATION
  Report Type: 
  Country: None (occurrence: None)
  Receive Date: 20090817
  Receipt Date: 20090817
  Transmission Date: 20100115
  Serious: Yes (Hospitalization)
  Sender: FDA-Public Use
  Company Number: None

PATIENT

DRUGS (2)
  1. CYCLOBENZAPRINE [Suspect]
     Indication: HEADACHE
     Dosage: 1 TABLET 3 TIMES A DAY
     Dates: start: 20090805, end: 20090809
  2. ADVIL 200MG [Suspect]
     Indication: HEADACHE
     Dosage: 3 TABLETS 3 TIMES A DAY
     Dates: start: 20090805, end: 20090809

REACTIONS (2)
  - CONFUSIONAL STATE [None]
  - HEADACHE [None]
